FAERS Safety Report 9454731 (Version 1)
Quarter: 2013Q3

REPORT INFORMATION
  Report Type: Spontaneous
  Country: US (occurrence: US)
  Receive Date: 20130812
  Receipt Date: 20130812
  Transmission Date: 20140515
  Serious: Yes (Other)
  Sender: FDA-Public Use
  Company Number: CHPA2013US012379

PATIENT
  Age: 52 Year
  Sex: Female

DRUGS (3)
  1. EXCEDRIN ES BACK + BODY [Suspect]
     Indication: BACK DISORDER
     Dosage: UNK, UNK
     Route: 048
  2. SIMVASTATIN [Concomitant]
  3. LOPRESSOR [Concomitant]

REACTIONS (10)
  - Abdominal pain upper [Not Recovered/Not Resolved]
  - Malaise [Recovering/Resolving]
  - Food poisoning [Recovering/Resolving]
  - Skin induration [Not Recovered/Not Resolved]
  - Rash pruritic [Not Recovered/Not Resolved]
  - Rash pustular [Not Recovered/Not Resolved]
  - Abdominal discomfort [Not Recovered/Not Resolved]
  - Pigmentation disorder [Not Recovered/Not Resolved]
  - Crying [Unknown]
  - Off label use [Unknown]
